FAERS Safety Report 18173735 (Version 1)
Quarter: 2020Q3

REPORT INFORMATION
  Report Type: Spontaneous
  Country: CA (occurrence: CA)
  Receive Date: 20200820
  Receipt Date: 20200820
  Transmission Date: 20201103
  Serious: Yes (Hospitalization)
  Sender: FDA-Public Use
  Company Number: CA-AUROBINDO-AUR-APL-2019-077627

PATIENT
  Age: 49 Year
  Sex: Female

DRUGS (16)
  1. ROCURONIUM [Interacting]
     Active Substance: ROCURONIUM BROMIDE
     Indication: HYPOTONIA
     Dosage: 1 MILLIGRAM/KILOGRAM
     Route: 065
  2. FLUVOXAMINE [Suspect]
     Active Substance: FLUVOXAMINE
     Indication: PRODUCT USED FOR UNKNOWN INDICATION
     Dosage: UNK
     Route: 065
  3. MIDAZOLAM. [Interacting]
     Active Substance: MIDAZOLAM
     Indication: ANAESTHESIA
     Dosage: 0.3 MICROGRAM/KILOGRAM
     Route: 065
  4. NOREPINEPHRINE. [Interacting]
     Active Substance: NOREPINEPHRINE
     Indication: HYPOTENSION
     Dosage: UNK
     Route: 065
  5. SEVOFLURANE. [Interacting]
     Active Substance: SEVOFLURANE
     Indication: MAINTENANCE OF ANAESTHESIA
     Dosage: UNK
     Route: 065
  6. CLONAZEPAM. [Interacting]
     Active Substance: CLONAZEPAM
     Indication: DEPRESSION
  7. PAROXETINE. [Suspect]
     Active Substance: PAROXETINE
     Indication: DEPRESSION
     Dosage: 40 MILLIGRAM
     Route: 065
  8. CLONAZEPAM. [Interacting]
     Active Substance: CLONAZEPAM
     Indication: ANXIETY
     Dosage: 0.5 MILLIGRAM
     Route: 065
  9. PROPOFOL. [Interacting]
     Active Substance: PROPOFOL
     Indication: INDUCTION OF ANAESTHESIA
     Dosage: 9 MILLIGRAM/KILOGRAM
     Route: 065
  10. DIAZEPAM. [Interacting]
     Active Substance: DIAZEPAM
     Indication: PREOPERATIVE CARE
     Dosage: 10 MILLIGRAM
     Route: 065
  11. FENTANYL. [Interacting]
     Active Substance: FENTANYL
     Indication: ANAESTHESIA
     Dosage: 13 MICROGRAM/KILOGRAM
     Route: 042
  12. MEPERIDINE [Suspect]
     Active Substance: MEPERIDINE
     Indication: PRODUCT USED FOR UNKNOWN INDICATION
     Dosage: UNK
     Route: 065
  13. PAROXETINE. [Interacting]
     Active Substance: PAROXETINE
     Indication: ANXIETY
  14. METHYLENE BLUE. [Interacting]
     Active Substance: METHYLENE BLUE
     Indication: HYPOTENSION
     Dosage: 1 MILLIGRAM/KILOGRAM
     Route: 065
  15. SEROQUEL [Interacting]
     Active Substance: QUETIAPINE FUMARATE
     Indication: DEPRESSION
  16. SEROQUEL [Interacting]
     Active Substance: QUETIAPINE FUMARATE
     Indication: ANXIETY
     Dosage: 25 MILLIGRAM, TWO TIMES A DAY
     Route: 065

REACTIONS (11)
  - Drug interaction [Recovered/Resolved]
  - Toxic encephalopathy [Recovered/Resolved]
  - Blood potassium increased [Recovered/Resolved]
  - Serotonin syndrome [Recovered/Resolved]
  - Amylase increased [Recovered/Resolved]
  - Myoglobin urine present [Recovered/Resolved]
  - Blood lactate dehydrogenase increased [Recovered/Resolved]
  - Blood creatine phosphokinase increased [Recovered/Resolved]
  - Alanine aminotransferase increased [Recovered/Resolved]
  - Hypotension [Recovered/Resolved]
  - Troponin increased [Recovered/Resolved]
